FAERS Safety Report 10670404 (Version 1)
Quarter: 2014Q4

REPORT INFORMATION
  Report Type: Spontaneous
  Country: NZ (occurrence: None)
  Receive Date: 20141218
  Receipt Date: 20141218
  Transmission Date: 20150529
  Serious: Yes (Other)
  Sender: FDA-Public Use
  Company Number: NZ-DEXPHARM-20141051

PATIENT
  Age: 46 Year
  Sex: Male

DRUGS (4)
  1. DICLOFENAC [Suspect]
     Active Substance: DICLOFENAC
     Indication: HAEMORRHOID OPERATION
     Route: 030
  2. CODEINE PHSOPHATE [Concomitant]
  3. IBUPROFEN. [Concomitant]
     Active Substance: IBUPROFEN
  4. ACETAMINOPHEN. [Concomitant]
     Active Substance: ACETAMINOPHEN

REACTIONS (6)
  - Streptococcus test positive [None]
  - Disseminated intravascular coagulation [None]
  - Muscle necrosis [None]
  - Acute respiratory distress syndrome [None]
  - Renal failure [None]
  - Necrotising fasciitis [None]
